FAERS Safety Report 24361621 (Version 1)
Quarter: 2024Q3

REPORT INFORMATION
  Report Type: Spontaneous
  Country: US (occurrence: US)
  Receive Date: 20240925
  Receipt Date: 20240925
  Transmission Date: 20241017
  Serious: Yes (Other)
  Sender: AMGEN
  Company Number: US-AMGEN-USASP2024186683

PATIENT
  Age: 31 Year
  Sex: Female

DRUGS (11)
  1. PREDNISONE [Suspect]
     Active Substance: PREDNISONE
     Indication: Ovarian disorder
     Dosage: 30 MILLIGRAM
     Route: 065
     Dates: start: 2021
  2. PREDNISONE [Suspect]
     Active Substance: PREDNISONE
     Dosage: 30 MILLIGRAM
     Route: 065
  3. PREDNISONE [Suspect]
     Active Substance: PREDNISONE
     Dosage: UNK, TAPER
     Route: 065
  4. FOLLITROPIN [Concomitant]
     Active Substance: FOLLITROPIN
     Dosage: 150 INTERNATIONAL UNIT
  5. FOLLITROPIN [Concomitant]
     Active Substance: FOLLITROPIN
     Dosage: 150 INTERNATIONAL UNIT
     Dates: start: 2020
  6. FOLLITROPIN [Concomitant]
     Active Substance: FOLLITROPIN
     Dosage: 200 INTERNATIONAL UNIT
     Dates: start: 2020
  7. FOLLITROPIN [Concomitant]
     Active Substance: FOLLITROPIN
     Dosage: 300 INTERNATIONAL UNIT
     Dates: start: 2020
  8. GONADOTROPHIN, CHORIONIC [Concomitant]
     Active Substance: GONADOTROPHIN, CHORIONIC
     Dosage: 75 INTERNATIONAL UNIT
  9. GONADOTROPHIN, CHORIONIC [Concomitant]
     Active Substance: GONADOTROPHIN, CHORIONIC
     Dosage: 150 INTERNATIONAL UNIT
     Dates: start: 2020
  10. GONADOTROPHIN, CHORIONIC [Concomitant]
     Active Substance: GONADOTROPHIN, CHORIONIC
     Dosage: 150 INTERNATIONAL UNIT
     Dates: start: 2020
  11. MENOPUR [Concomitant]
     Active Substance: FOLLITROPIN\LUTEINIZING HORMONE
     Dosage: 150 INTERNATIONAL UNIT
     Dates: start: 2020

REACTIONS (5)
  - Abortion spontaneous [Unknown]
  - Uterine hyperstimulation [Unknown]
  - Drug effective for unapproved indication [Unknown]
  - Maternal exposure during pregnancy [Unknown]
  - Off label use [Unknown]

NARRATIVE: CASE EVENT DATE: 20210101
